FAERS Safety Report 6960293 (Version 2)
Quarter: 2013Q3

REPORT INFORMATION
  Report Type: Spontaneous
  Country: US (occurrence: CA)
  Receive Date: 20090403
  Receipt Date: 20130802
  Transmission Date: 20140515
  Serious: Yes (Hospitalization)
  Sender: FDA-Public Use
  Company Number: CA-B.I. PHARMACEUTICALS,INC./RIDGEFIELD-2009-BP-04062BP

PATIENT
  Age: 63 Year
  Sex: Male
  Weight: 70.31 kg

DRUGS (1)
  1. MIRAPEX [Suspect]
     Indication: PARKINSON^S DISEASE
     Dates: start: 19990628, end: 200703

REACTIONS (13)
  - Hallucination [Unknown]
  - Confusional state [Unknown]
  - Delusion [Unknown]
  - Paranoia [Unknown]
  - Psychotic disorder [Recovered/Resolved]
  - Pathological gambling [Recovered/Resolved]
  - Obsessive-compulsive disorder [Unknown]
  - Hypersexuality [Unknown]
  - Dermatillomania [Unknown]
  - Compulsive shopping [Unknown]
  - Anxiety [Unknown]
  - Depression [Unknown]
  - Aggression [Unknown]
